FAERS Safety Report 26006392 (Version 1)
Quarter: 2025Q4

REPORT INFORMATION
  Report Type: Spontaneous
  Country: US (occurrence: None)
  Receive Date: 20251106
  Receipt Date: 20251106
  Transmission Date: 20260118
  Serious: Yes (Hospitalization)
  Sender: FDA-CTU
  Company Number: None

PATIENT
  Sex: Female

DRUGS (1)
  1. TEMOZOLOMIDE [Suspect]
     Active Substance: TEMOZOLOMIDE
     Indication: Brain neoplasm malignant
     Dosage: 280 MG ORAL ??OTHER FREQUENCY : SEE EVENT?
     Route: 048
     Dates: start: 20250703

REACTIONS (2)
  - Confusional state [None]
  - Urinary tract infection [None]
